FAERS Safety Report 8758802 (Version 2)
Quarter: 2012Q4

REPORT INFORMATION
  Report Type: Spontaneous
  Country: US (occurrence: None)
  Receive Date: 20120814
  Receipt Date: 20120821
  Transmission Date: 20130627
  Serious: Yes (Hospitalization)
  Sender: FDA-Public Use
  Company Number: AUR-APL-2012-03433

PATIENT
  Age: 65 Year
  Sex: Female

DRUGS (14)
  1. SIMVASTATIN [Suspect]
     Indication: HYPERCHOLESTEROLAEMIA
     Route: 048
     Dates: end: 20120712
  2. ASPIRIN (ACETYLSALICYLIC ACID) [Concomitant]
  3. BUTRANS (BUPRENORPHINE) [Concomitant]
  4. CETIRIZINE (CETIRIZINE) [Concomitant]
  5. CO-AMILOFRUSE (FRUMIL) [Concomitant]
  6. LEVOTHYROXINE (LEVOTHYROXINE) [Concomitant]
  7. LINAGLIPTIN (LINAGLIPTIN) [Concomitant]
  8. METFORMIN (METFORMIN) [Concomitant]
  9. NICORANDIL (NICORANDIL) [Concomitant]
  10. NOVOMIX (INSULIN ASPART) [Concomitant]
  11. OMEPRAZOLE (OMEPRAZOLE) [Concomitant]
  12. SERETIDE (SERETIDE) [Concomitant]
  13. VERAPAMIL (VERAPAMIL HYDROCHLORIDE) [Concomitant]
  14. RAMIPRIL [Suspect]

REACTIONS (2)
  - Rhabdomyolysis [None]
  - Renal failure acute [None]
